FAERS Safety Report 17787670 (Version 1)
Quarter: 2020Q2

REPORT INFORMATION
  Report Type: Spontaneous
  Country: IT (occurrence: IT)
  Receive Date: 20200515
  Receipt Date: 20200515
  Transmission Date: 20200714
  Serious: Yes (Hospitalization, Other)
  Sender: FDA-Public Use
  Company Number: IT-AUROBINDO-AUR-APL-2020-021541

PATIENT
  Age: 1 Year
  Sex: Female

DRUGS (4)
  1. PARACETAMOL [Suspect]
     Active Substance: ACETAMINOPHEN
     Indication: PYREXIA
     Dosage: UNK
     Route: 042
  2. ACETAMINOPHEN. [Suspect]
     Active Substance: ACETAMINOPHEN
     Dosage: UNK
     Route: 042
  3. ACETAMINOPHEN. [Suspect]
     Active Substance: ACETAMINOPHEN
     Indication: PYREXIA
     Dosage: UNK
     Route: 048
  4. PARACETAMOL [Suspect]
     Active Substance: ACETAMINOPHEN
     Dosage: UNK

REACTIONS (9)
  - Fixed eruption [Recovered/Resolved with Sequelae]
  - Parakeratosis [Recovered/Resolved]
  - Skin lesion [Recovered/Resolved]
  - Acanthosis [Recovered/Resolved]
  - Eosinophil count increased [Unknown]
  - Lymphocytic infiltration [Recovered/Resolved]
  - Rash erythematous [Recovered/Resolved]
  - Disease recurrence [Recovered/Resolved]
  - Rash pruritic [Recovered/Resolved]
